FAERS Safety Report 4485507-3 (Version None)
Quarter: 2004Q4

REPORT INFORMATION
  Report Type: 
  Country: None (occurrence: None)
  Receive Date: 20041026
  Receipt Date: 20041012
  Transmission Date: 20050328
  Serious: Yes (Hospitalization)
  Sender: FDA-Public Use
  Company Number: DE-AMGEN-UK095049

PATIENT
  Sex: Male

DRUGS (6)
  1. KINERET [Suspect]
     Indication: RHEUMATOID ARTHRITIS
     Route: 058
     Dates: end: 20040607
  2. METHOTREXATE [Suspect]
     Route: 065
     Dates: start: 20030501, end: 20040701
  3. PREDNISOLONE [Concomitant]
     Route: 065
  4. CELEBREX [Concomitant]
     Route: 065
  5. ETANERCEPT [Concomitant]
     Route: 065
     Dates: start: 20040101, end: 20040501
  6. ADALIMUMAB [Concomitant]
     Route: 065
     Dates: start: 20040601

REACTIONS (2)
  - DRUG INEFFECTIVE [None]
  - RHEUMATOID ARTHRITIS [None]
